FAERS Safety Report 10387106 (Version 1)
Quarter: 2014Q1

REPORT INFORMATION
  Report Type: Spontaneous
  Country: US (occurrence: None)
  Receive Date: 20140306
  Receipt Date: 20140306
  Transmission Date: 20141002
  Serious: Yes (Hospitalization)
  Sender: FDA-Public Use
  Company Number: 163-21880-13043172

PATIENT
  Age: 59 Year
  Sex: Female

DRUGS (12)
  1. REVLIMID [Suspect]
     Indication: PLASMA CELL MYELOMA
     Dosage: 25 MG, 14 IN 21 D
     Route: 048
     Dates: start: 20130320
  2. PERCOCET (OXYCOCET) [Concomitant]
  3. ALBUTEROL SULFA HFA (SALBUTAMOL SULFATE) [Concomitant]
  4. VITAMIN D3 (COLECALCIFEROL) [Concomitant]
  5. ZOLPIDEM TARTRATE [Concomitant]
  6. SYNTHROID (LEVOTHYROXINE SODIUM) [Concomitant]
  7. GABAPENTIN [Concomitant]
  8. ALPRAZOLAM [Concomitant]
  9. CELEXA (CITALOPRAM HYDROBROMIDE) [Concomitant]
  10. MIRALAX (MACROGOL) [Concomitant]
  11. SENNA [Concomitant]
  12. MORPHINE SULFATE [Concomitant]

REACTIONS (1)
  - Blood calcium decreased [None]
